FAERS Safety Report 8999489 (Version 1)
Quarter: 2013Q1

REPORT INFORMATION
  Report Type: Spontaneous
  Country: CM (occurrence: CM)
  Receive Date: 20130103
  Receipt Date: 20130103
  Transmission Date: 20140127
  Serious: Yes (Other)
  Sender: FDA-Public Use
  Company Number: CM-VIIV HEALTHCARE LIMITED-B0856123A

PATIENT
  Age: 30 Year
  Sex: Male

DRUGS (3)
  1. LAMIVUDINE-HIV [Suspect]
     Indication: HIV INFECTION
     Route: 065
  2. ZIDOVUDINE [Suspect]
     Indication: HIV INFECTION
     Route: 065
  3. EFAVIRENZ [Suspect]
     Indication: HIV INFECTION
     Route: 065

REACTIONS (6)
  - Immune reconstitution inflammatory syndrome [Unknown]
  - Vitiligo [Unknown]
  - Rash [Unknown]
  - Skin hypopigmentation [Recovering/Resolving]
  - Macule [Unknown]
  - Skin lesion [Unknown]
